FAERS Safety Report 21037018 (Version 1)
Quarter: 2022Q3

REPORT INFORMATION
  Report Type: Spontaneous
  Country: US (occurrence: US)
  Receive Date: 20220702
  Receipt Date: 20220702
  Transmission Date: 20221026
  Serious: No
  Sender: FDA-Public Use
  Company Number: US-TAKEDA-2022TUS042660

PATIENT
  Sex: Female

DRUGS (2)
  1. HYQVIA [Suspect]
     Active Substance: HUMAN IMMUNOGLOBULIN G\HYALURONIDASE RECOMBINANT HUMAN
     Indication: Product used for unknown indication
     Dosage: UNK
     Route: 065
  2. GAMMAGARD [Suspect]
     Active Substance: HUMAN IMMUNOGLOBULIN G
     Indication: Product used for unknown indication
     Route: 058

REACTIONS (2)
  - Illness [Unknown]
  - Subcutaneous drug absorption impaired [Unknown]
